FAERS Safety Report 4698844-4 (Version None)
Quarter: 2005Q2

REPORT INFORMATION
  Report Type: 
  Country: None (occurrence: None)
  Receive Date: 20050622
  Receipt Date: 20050606
  Transmission Date: 20051028
  Serious: Yes (Death, Hospitalization)
  Sender: FDA-Public Use
  Company Number: WAES 0506USA01077

PATIENT
  Age: 60 Year
  Sex: Male
  Weight: 127.0072 kg

DRUGS (7)
  1. VIOXX [Suspect]
     Indication: ARTHRITIS
     Dosage: 12.5 + 25 MG/DAILY/PO
     Route: 048
     Dates: start: 20000411, end: 20000508
  2. VIOXX [Suspect]
     Indication: CHEST WALL PAIN
     Dosage: 12.5 + 25 MG/DAILY/PO
     Route: 048
     Dates: start: 20000411, end: 20000508
  3. VIOXX [Suspect]
     Indication: ARTHRITIS
     Dosage: 12.5 + 25 MG/DAILY/PO
     Route: 048
     Dates: start: 20000509
  4. VIOXX [Suspect]
     Indication: CHEST WALL PAIN
     Dosage: 12.5 + 25 MG/DAILY/PO
     Route: 048
     Dates: start: 20000509
  5. PRILOSEC [Concomitant]
  6. XENICAL [Concomitant]
  7. ZOCOR [Concomitant]

REACTIONS (45)
  - AGITATION [None]
  - ALOPECIA [None]
  - ANXIETY [None]
  - ARTHRITIS BACTERIAL [None]
  - ATRIAL FIBRILLATION [None]
  - ATRIAL FLUTTER [None]
  - BACTERIAL SEPSIS [None]
  - BLOOD THYROID STIMULATING HORMONE INCREASED [None]
  - CARDIAC FAILURE CONGESTIVE [None]
  - CHOKING [None]
  - CHOLELITHIASIS [None]
  - COAGULOPATHY [None]
  - COR PULMONALE [None]
  - CRYING [None]
  - DECREASED ACTIVITY [None]
  - DEPRESSION [None]
  - DERMATITIS [None]
  - DIALYSIS [None]
  - DYSPNOEA [None]
  - EMOTIONAL DISTRESS [None]
  - ENCEPHALOPATHY [None]
  - HAEMOGLOBIN DECREASED [None]
  - HYPERGLYCAEMIA [None]
  - HYPERKINESIA [None]
  - INSOMNIA [None]
  - JOINT DISLOCATION [None]
  - MENISCUS LESION [None]
  - MYOCARDIAL ISCHAEMIA [None]
  - PANIC ATTACK [None]
  - PLANTAR FASCIITIS [None]
  - PLATELET COUNT DECREASED [None]
  - PNEUMONIA [None]
  - QUADRIPARESIS [None]
  - RENAL FAILURE [None]
  - RESPIRATORY FAILURE [None]
  - SLEEP APNOEA SYNDROME [None]
  - SNORING [None]
  - SPINAL CORD INFARCTION [None]
  - STAPHYLOCOCCAL INFECTION [None]
  - STENOTROPHOMONAS SEPSIS [None]
  - STRESS [None]
  - TRANSIENT ISCHAEMIC ATTACK [None]
  - VENTRICULAR DYSFUNCTION [None]
  - VERTIGO [None]
  - WEIGHT INCREASED [None]
